FAERS Safety Report 6099263-9 (Version None)
Quarter: 2009Q1

REPORT INFORMATION
  Report Type: 
  Country: None (occurrence: None)
  Receive Date: 20090303
  Receipt Date: 20090219
  Transmission Date: 20090719
  Serious: Yes (Other)
  Sender: FDA-Public Use
  Company Number: US-JNJFOC-20060602872

PATIENT
  Sex: Female

DRUGS (9)
  1. LEVAQUIN [Suspect]
     Indication: SINUSITIS
     Route: 048
  2. LIPITOR [Concomitant]
  3. SYNTHROID [Concomitant]
  4. CELEBREX [Concomitant]
  5. ACTONEL [Concomitant]
  6. LEXAPRO [Concomitant]
  7. NEURONTIN [Concomitant]
  8. CYTOMEL [Concomitant]
  9. ZOCOR [Concomitant]

REACTIONS (8)
  - AGEUSIA [None]
  - GLOSSOPHARYNGEAL NEURALGIA [None]
  - HYPOAESTHESIA ORAL [None]
  - MYALGIA [None]
  - NEUROPATHY PERIPHERAL [None]
  - PAIN [None]
  - TENDON PAIN [None]
  - TRIGEMINAL NEURALGIA [None]
